FAERS Safety Report 8104254-X (Version None)
Quarter: 2012Q1

REPORT INFORMATION
  Report Type: 
  Country: None (occurrence: None)
  Receive Date: 20120130
  Receipt Date: 20120106
  Transmission Date: 20120608
  Serious: Yes (Other)
  Sender: FDA-Public Use
  Company Number: DE-BAYER-2012-002097

PATIENT
  Age: 72 Year
  Sex: Female
  Weight: 59 kg

DRUGS (1)
  1. NEXAVAR [Suspect]
     Indication: METASTATIC RENAL CELL CARCINOMA
     Dosage: DAILY DOSE 800 MG
     Dates: start: 20110301

REACTIONS (7)
  - HYPOAESTHESIA [None]
  - BURNING SENSATION [None]
  - ERYTHEMA [None]
  - POLYNEUROPATHY [None]
  - FEELING HOT [None]
  - INFLAMMATION [None]
  - PAIN [None]
